FAERS Safety Report 6847803-1 (Version None)
Quarter: 2010Q3

REPORT INFORMATION
  Report Type: 
  Country: None (occurrence: None)
  Receive Date: 20100716
  Receipt Date: 20100707
  Transmission Date: 20110219
  Serious: Yes (Death, Hospitalization, Other)
  Sender: FDA-Public Use
  Company Number: NL-SANOFI-AVENTIS-2010SA039400

PATIENT
  Age: 56 Year
  Sex: Male

DRUGS (2)
  1. RIFAMATE [Suspect]
     Indication: TUBERCULOSIS
     Dates: start: 20100101, end: 20100401
  2. PYRAZINAMIDE [Suspect]
     Indication: TUBERCULOSIS
     Dates: start: 20100101

REACTIONS (2)
  - DEATH [None]
  - HEPATITIS [None]
